FAERS Safety Report 19798418 (Version 2)
Quarter: 2021Q3

REPORT INFORMATION
  Report Type: Spontaneous
  Country: JP (occurrence: JP)
  Receive Date: 20210906
  Receipt Date: 20210921
  Transmission Date: 20211014
  Serious: Yes (Hospitalization)
  Sender: FDA-Public Use
  Company Number: JP-ELI_LILLY_AND_COMPANY-JP202108011688

PATIENT
  Age: 68 Year
  Sex: Male

DRUGS (13)
  1. GASTER [Concomitant]
     Active Substance: FAMOTIDINE
  2. CANALIA COMBINATION [Concomitant]
     Active Substance: CANAGLIFLOZIN\TENELIGLIPTIN
     Dosage: 1 DOSAGE FORM, DAILY
     Route: 048
  3. PRALIA [Concomitant]
     Active Substance: DENOSUMAB
     Indication: OSTEOPOROSIS
  4. LOXONIN [Concomitant]
     Active Substance: LOXOPROFEN SODIUM
     Route: 048
  5. TAKECAB [Concomitant]
     Active Substance: VONOPRAZAN FUMARATE
     Dosage: 20 MG, DAILY
     Route: 048
  6. AZULFIDINE EN?TABS [Concomitant]
     Active Substance: SULFASALAZINE
  7. OLUMIANT [Suspect]
     Active Substance: BARICITINIB
     Indication: RHEUMATOID VASCULITIS
     Dosage: 2 MG, DAILY
     Route: 048
     Dates: start: 20201125
  8. AZILVA [Concomitant]
     Active Substance: AZILSARTAN KAMEDOXOMIL
     Dosage: 20 MG, DAILY
     Route: 048
  9. AMLODIPINE BESILATE [Concomitant]
     Active Substance: AMLODIPINE BESYLATE
     Dosage: 5 MG, DAILY
     Route: 048
  10. PREDONINE [Concomitant]
     Active Substance: PREDNISOLONE
     Indication: RHEUMATOID ARTHRITIS
  11. LYUMJEV [INSULIN LISPRO] [Concomitant]
     Dosage: 7 IU IN THE MORNING, 8 IU IN THE AFTERNOON, 4 IU IN THE EVENING
     Route: 058
  12. METGLUCO [Concomitant]
     Active Substance: METFORMIN HYDROCHLORIDE
     Dosage: 500 MG, DAILY
     Route: 048
  13. REPAGLINIDE. [Concomitant]
     Active Substance: REPAGLINIDE
     Dosage: 0.5 MG, DAILY
     Route: 048

REACTIONS (3)
  - Adenocarcinoma pancreas [Not Recovered/Not Resolved]
  - Jaundice cholestatic [Recovering/Resolving]
  - Off label use [Unknown]

NARRATIVE: CASE EVENT DATE: 20210725
